FAERS Safety Report 7418242-X (Version None)
Quarter: 2011Q2

REPORT INFORMATION
  Report Type: 
  Country: None (occurrence: None)
  Receive Date: 20110415
  Receipt Date: 20110411
  Transmission Date: 20111010
  Serious: Yes (Other)
  Sender: FDA-Public Use
  Company Number: US-BAYER-2011-031912

PATIENT
  Sex: Female

DRUGS (2)
  1. OCELLA [Suspect]
     Dosage: UNK
     Dates: start: 20090301, end: 20090701
  2. YASMIN [Suspect]
     Dosage: UNK
     Dates: start: 20050101, end: 20090301

REACTIONS (2)
  - PULMONARY EMBOLISM [None]
  - DEEP VEIN THROMBOSIS [None]
